FAERS Safety Report 5587291-9 (Version None)
Quarter: 2008Q1

REPORT INFORMATION
  Report Type: 
  Country: None (occurrence: None)
  Receive Date: 20080110
  Receipt Date: 20080104
  Transmission Date: 20080703
  Serious: Yes (Other)
  Sender: FDA-Public Use
  Company Number: DE-PFIZER INC-2008001973

PATIENT
  Sex: Female
  Weight: 65 kg

DRUGS (1)
  1. ZITHROMAX [Suspect]
     Indication: BRONCHITIS
     Dosage: DAILY DOSE:500MG
     Route: 048
     Dates: start: 20000327, end: 20000329

REACTIONS (2)
  - CERVIX DISORDER [None]
  - RETAINED PLACENTA OR MEMBRANES [None]
